FAERS Safety Report 24945213 (Version 2)
Quarter: 2025Q1

REPORT INFORMATION
  Report Type: Report from Study
  Country: US (occurrence: US)
  Receive Date: 20250208
  Receipt Date: 20250314
  Transmission Date: 20250409
  Serious: Yes (Hospitalization, Other)
  Sender: ABBVIE
  Company Number: US-ABBVIE-6075946

PATIENT
  Age: 63 Year
  Sex: Female

DRUGS (2)
  1. HUMIRA [Suspect]
     Active Substance: ADALIMUMAB
     Indication: Uveitis
     Route: 058
     Dates: start: 20230825
  2. HUMIRA [Suspect]
     Active Substance: ADALIMUMAB
     Route: 058
     Dates: start: 20240304

REACTIONS (8)
  - Embolism [Unknown]
  - Sleep apnoea syndrome [Not Recovered/Not Resolved]
  - Hypertension [Recovering/Resolving]
  - Malaise [Recovering/Resolving]
  - Muscle tightness [Recovering/Resolving]
  - Gait disturbance [Unknown]
  - Dizziness [Unknown]
  - Thrombosis [Recovering/Resolving]

NARRATIVE: CASE EVENT DATE: 20240101
